FAERS Safety Report 9179250 (Version 2)
Quarter: 2013Q1

REPORT INFORMATION
  Report Type: Spontaneous
  Country: JP (occurrence: JP)
  Receive Date: 20130321
  Receipt Date: 20130328
  Transmission Date: 20140127
  Serious: Yes (Life-Threatening, Hospitalization)
  Sender: FDA-Public Use
  Company Number: JP-GLAXOSMITHKLINE-B0875267A

PATIENT
  Age: 14 None
  Sex: Male

DRUGS (6)
  1. RELENZA [Suspect]
     Indication: INFLUENZA
     Dosage: 10MG TWICE PER DAY
     Route: 055
     Dates: start: 20130228
  2. TRANEXAMIC ACID [Concomitant]
     Indication: INFLAMMATION
     Dosage: 250MG THREE TIMES PER DAY
     Route: 048
     Dates: start: 20130228
  3. ASVERIN (TIPEPIDINE HIBENZATE) [Concomitant]
     Indication: INFLAMMATION
     Dosage: 20MG THREE TIMES PER DAY
     Route: 048
     Dates: start: 20130228
  4. MUCODYNE [Concomitant]
     Indication: NASOPHARYNGITIS
     Dosage: 500MG THREE TIMES PER DAY
     Route: 048
     Dates: start: 20130304
  5. MEDICON [Concomitant]
     Indication: NASOPHARYNGITIS
     Dosage: 15MG THREE TIMES PER DAY
     Route: 048
     Dates: start: 20130304
  6. MUCOSTA [Concomitant]
     Indication: DECREASED APPETITE
     Dosage: 100MG THREE TIMES PER DAY
     Route: 048
     Dates: start: 20130306

REACTIONS (10)
  - Thrombotic thrombocytopenic purpura [Recovered/Resolved]
  - Haemolytic anaemia [Recovered/Resolved]
  - Dizziness [Unknown]
  - Headache [Unknown]
  - Purpura [Unknown]
  - Gastroenteritis [Unknown]
  - Hypoaesthesia [Unknown]
  - Coordination abnormal [Unknown]
  - Asthenia [Unknown]
  - Malaise [Unknown]
